FAERS Safety Report 8136820-X (Version None)
Quarter: 2012Q1

REPORT INFORMATION
  Report Type: 
  Country: None (occurrence: None)
  Receive Date: 20120214
  Receipt Date: 20120207
  Transmission Date: 20120608
  Serious: Yes (Other)
  Sender: FDA-Public Use
  Company Number: US-CELGENEUS-163-20785-12010906

PATIENT
  Sex: Female

DRUGS (1)
  1. THALOMID [Suspect]
     Indication: AMYLOIDOSIS
     Dosage: 50 MILLIGRAM
     Route: 048
     Dates: start: 20110901

REACTIONS (1)
  - CARDIAC DISORDER [None]
